FAERS Safety Report 7073321-4 (Version None)
Quarter: 2010Q4

REPORT INFORMATION
  Report Type: 
  Country: None (occurrence: None)
  Receive Date: 20101029
  Receipt Date: 20100727
  Transmission Date: 20110411
  Serious: No
  Sender: FDA-Public Use
  Company Number: A0861993A

PATIENT
  Age: 87 Year
  Sex: Female

DRUGS (4)
  1. ADVAIR DISKUS 100/50 [Suspect]
     Dosage: 1PUFF TWICE PER DAY
     Route: 055
  2. WARFARIN SODIUM [Concomitant]
  3. TOPROL-XL [Concomitant]
  4. CENTRUM SILVER [Concomitant]

REACTIONS (5)
  - BUCCAL MUCOSAL ROUGHENING [None]
  - DRUG INEFFECTIVE [None]
  - FOREIGN BODY [None]
  - PRODUCT QUALITY ISSUE [None]
  - TOOTH DEPOSIT [None]
